FAERS Safety Report 21327345 (Version 1)
Quarter: 2022Q3

REPORT INFORMATION
  Report Type: Other
  Country: MX (occurrence: None)
  Receive Date: 20220913
  Receipt Date: 20220913
  Transmission Date: 20221026
  Serious: Yes (Other)
  Sender: FDA-Public Use
  Company Number: MX-ROCHE-3175697

PATIENT
  Sex: Female
  Weight: 67.4 kg

DRUGS (9)
  1. ACTEMRA [Suspect]
     Active Substance: TOCILIZUMAB
     Indication: Still^s disease
     Dosage: TOCILIZUMAB VIAL OF 200MG/10ML
     Route: 042
     Dates: start: 20211110
  2. METHOTREXATE [Concomitant]
     Active Substance: METHOTREXATE
     Indication: Still^s disease
     Route: 048
  3. PREDNISONE [Concomitant]
     Active Substance: PREDNISONE
     Indication: Still^s disease
     Route: 048
  4. CALCIUM [Concomitant]
     Active Substance: CALCIUM
     Dosage: 500 MG TABLETS
     Route: 048
  5. OMEPRAZOLE [Concomitant]
     Active Substance: OMEPRAZOLE
  6. RISEDRONATE SODIUM [Concomitant]
     Active Substance: RISEDRONATE SODIUM
  7. ETORICOXIB [Concomitant]
     Active Substance: ETORICOXIB
     Indication: Pain
  8. ATORVASTATIN [Concomitant]
     Active Substance: ATORVASTATIN
  9. BEZAFIBRATE [Concomitant]
     Active Substance: BEZAFIBRATE

REACTIONS (9)
  - Arthralgia [Unknown]
  - Nausea [Unknown]
  - Pallor [Unknown]
  - Cushingoid [Unknown]
  - Deformity [Unknown]
  - Rash [Unknown]
  - Serum ferritin increased [Unknown]
  - Hyperbilirubinaemia [Unknown]
  - Dyslipidaemia [Unknown]
